FAERS Safety Report 4283440-3 (Version None)
Quarter: 2004Q1

REPORT INFORMATION
  Report Type: 
  Country: None (occurrence: None)
  Receive Date: 20040121
  Receipt Date: 20031010
  Transmission Date: 20041129
  Serious: Yes (Hospitalization)
  Sender: FDA-Public Use
  Company Number: A03200302397

PATIENT
  Age: 76 Year
  Sex: Female
  Weight: 61.2356 kg

DRUGS (6)
  1. PLAVIX [Suspect]
     Indication: AORTIC OCCLUSION
     Dosage: 75 MG QD - ORAL
     Route: 048
     Dates: start: 20030601, end: 20030801
  2. TRAZODONE HCL [Concomitant]
  3. FUROSEMIDE [Concomitant]
  4. LANSOPRAZOLE [Concomitant]
  5. QUINAPRIL HYDROCHLORIDE [Concomitant]
  6. ATORVASTATIN [Concomitant]

REACTIONS (5)
  - ASTHENIA [None]
  - BURNING SENSATION [None]
  - FULL BLOOD COUNT DECREASED [None]
  - GASTROINTESTINAL HAEMORRHAGE [None]
  - HYPOTENSION [None]
